FAERS Safety Report 5475468-2 (Version None)
Quarter: 2007Q3

REPORT INFORMATION
  Report Type: 
  Country: None (occurrence: None)
  Receive Date: 20070919
  Receipt Date: 20060825
  Transmission Date: 20080115
  Serious: Yes (Other)
  Sender: FDA-Public Use
  Company Number: HQWYE274121JUL06

PATIENT
  Age: 6 Year
  Sex: Female
  Weight: 21.79 kg

DRUGS (2)
  1. LORATADINE [Suspect]
     Indication: HYPERSENSITIVITY
     Dosage: 1 TABLET AS NEEDED, ORAL
     Route: 048
  2. LORATADINE [Suspect]
     Indication: POSTNASAL DRIP
     Dosage: 1 TABLET AS NEEDED, ORAL
     Route: 048

REACTIONS (1)
  - DRUG EFFECT DECREASED [None]
